FAERS Safety Report 5243778-X (Version None)
Quarter: 2007Q1

REPORT INFORMATION
  Report Type: 
  Country: None (occurrence: None)
  Receive Date: 20070220
  Receipt Date: 20070220
  Transmission Date: 20070707
  Serious: Yes (Life-Threatening)
  Sender: FDA-Public Use
  Company Number: None

PATIENT
  Age: 57 Year
  Sex: Male
  Weight: 79.8331 kg

DRUGS (2)
  1. ENBREL [Suspect]
     Indication: RHEUMATOID ARTHRITIS
     Dosage: 50MG  WEEKLY  SQ
     Route: 058
     Dates: start: 19990614, end: 20070215
  2. METHOTREXATE [Suspect]
     Indication: RHEUMATOID ARTHRITIS
     Dosage: 20MG WEEKLY PO
     Route: 048
     Dates: start: 19990928, end: 20070215

REACTIONS (1)
  - BRONCHIOLOALVEOLAR CARCINOMA [None]
